FAERS Safety Report 7465460-0 (Version None)
Quarter: 2011Q2

REPORT INFORMATION
  Report Type: 
  Country: None (occurrence: None)
  Receive Date: 20110509
  Receipt Date: 20110505
  Transmission Date: 20111010
  Serious: Yes (Other)
  Sender: FDA-Public Use
  Company Number: DE-PFIZER INC-2011097163

PATIENT
  Sex: Female

DRUGS (19)
  1. ASPIRIN [Suspect]
     Dosage: 100 MG, UNK
  2. VITAMIN C [Concomitant]
  3. IBUPROFEN [Concomitant]
     Dosage: 600 MG, UNK
  4. LEFAX [Concomitant]
  5. VITIS VINIFERA [Concomitant]
  6. HEPA ^LOGES^ [Concomitant]
  7. PHOSETAMIN [Concomitant]
  8. ASPIRIN [Concomitant]
     Dosage: 100 MG, UNK
  9. BUFLOMEDIL HYDROCHLORIDE [Concomitant]
     Dosage: 80 MG, UNK
  10. PIRETANIDE SODIUM [Concomitant]
     Dosage: 0.5 DF, UNK
  11. CEFASEL [Concomitant]
  12. PANKREATIN [Concomitant]
  13. LINOLADIOL [Concomitant]
  14. PANTOPRAZOLE [Suspect]
     Indication: REFLUX OESOPHAGITIS
     Dosage: 40 MG, UNK
     Route: 048
     Dates: start: 20101221
  15. SINUC [Concomitant]
  16. PROTHYRID [Concomitant]
     Dosage: 0.5 DF, 2X/WEEK
  17. SALICYLATES [Concomitant]
  18. DIACARD [Concomitant]
  19. PANTHENOL [Concomitant]
     Dosage: 100 MG, UNK

REACTIONS (9)
  - MALAISE [None]
  - VAGINAL FISTULA [None]
  - GASTROINTESTINAL PAIN [None]
  - CHROMATURIA [None]
  - VARICOSE VEIN [None]
  - SKIN MASS [None]
  - DYSPEPSIA [None]
  - VEIN DISCOLOURATION [None]
  - DYSURIA [None]
